FAERS Safety Report 7072931-8 (Version None)
Quarter: 2010Q4

REPORT INFORMATION
  Report Type: 
  Country: None (occurrence: None)
  Receive Date: 20101029
  Receipt Date: 20100401
  Transmission Date: 20110411
  Serious: No
  Sender: FDA-Public Use
  Company Number: A0852995A

PATIENT
  Age: 12 Year
  Sex: Female

DRUGS (7)
  1. HEPATITIS A VACCINE [Suspect]
     Indication: PROPHYLAXIS
     Route: 065
  2. DIPHTHERIA,TETANUS + PERTUSSIS VACCINE,UNSPECIFIED [Suspect]
     Indication: PROPHYLAXIS
     Route: 065
  3. ADVAIR DISKUS 100/50 [Suspect]
     Indication: PNEUMONIA
     Dosage: 1PUFF TWICE PER DAY
     Route: 055
  4. AMOXICILLIN [Suspect]
     Indication: PRODUCT USED FOR UNKNOWN INDICATION
     Route: 048
  5. MENACTRA [Concomitant]
     Indication: PROPHYLAXIS
     Route: 065
  6. GARDASIL [Concomitant]
     Indication: PROPHYLAXIS
     Route: 065
  7. ZITHROMAX [Concomitant]
     Indication: PNEUMONIA
     Route: 065

REACTIONS (2)
  - HYPERSENSITIVITY [None]
  - URTICARIA [None]
